FAERS Safety Report 25902895 (Version 1)
Quarter: 2025Q4

REPORT INFORMATION
  Report Type: Spontaneous
  Country: US (occurrence: None)
  Receive Date: 20251009
  Receipt Date: 20251009
  Transmission Date: 20260117
  Serious: No
  Sender: FDA-CTU
  Company Number: None

PATIENT
  Age: 71 Year
  Sex: Female

DRUGS (1)
  1. XDEMVY [Suspect]
     Active Substance: LOTILANER
     Indication: Ocular demodicosis
     Dosage: 1 GTT DROP(S) TWICE A DAY OPHTHLMIC
     Route: 047

REACTIONS (2)
  - Eye haemorrhage [None]
  - Pain [None]

NARRATIVE: CASE EVENT DATE: 20251003
